FAERS Safety Report 12474117 (Version 1)
Quarter: 2016Q2

REPORT INFORMATION
  Report Type: Spontaneous
  Country: US (occurrence: US)
  Receive Date: 20160616
  Receipt Date: 20160616
  Transmission Date: 20160815
  Serious: Yes (Other)
  Sender: FDA-Public Use
  Company Number: US-BEH-2016070315

PATIENT
  Age: 6 Year
  Sex: Male

DRUGS (1)
  1. HUMAN IMMUNOGLOBULIN IV (INN) [Suspect]
     Active Substance: HUMAN IMMUNOGLOBULIN G
     Indication: ACUTE DISSEMINATED ENCEPHALOMYELITIS
     Dosage: 2000 MG/KG, UNK
     Route: 042

REACTIONS (4)
  - Chromaturia [Recovered/Resolved]
  - Haemolytic anaemia [Recovered/Resolved]
  - Pallor [Recovered/Resolved]
  - Cardiac murmur [Recovered/Resolved]
